FAERS Safety Report 9174244 (Version 2)
Quarter: 2013Q2

REPORT INFORMATION
  Report Type: Report from Study
  Country: AU (occurrence: AU)
  Receive Date: 20130320
  Receipt Date: 20130402
  Transmission Date: 20140414
  Serious: Yes (Other)
  Sender: FDA-Public Use
  Company Number: PHHY2013AU025760

PATIENT
  Sex: Male

DRUGS (1)
  1. CLOZAPINE [Suspect]
     Indication: SCHIZOPHRENIA
     Dosage: UNK
     Dates: end: 2009

REACTIONS (5)
  - Atrioventricular block second degree [Unknown]
  - Atrioventricular block first degree [Unknown]
  - Lethargy [Unknown]
  - Weight increased [Unknown]
  - Sinus tachycardia [Unknown]
